FAERS Safety Report 23752828 (Version 1)
Quarter: 2024Q2

REPORT INFORMATION
  Report Type: Spontaneous
  Country: US (occurrence: None)
  Receive Date: 20240417
  Receipt Date: 20240417
  Transmission Date: 20240716
  Serious: No
  Sender: FDA-Public Use
  Company Number: None

PATIENT
  Age: 50 Year
  Sex: Female

DRUGS (3)
  1. BOTOX [Suspect]
     Active Substance: ONABOTULINUMTOXINA
     Dates: start: 20240206, end: 20240206
  2. ADDERALL [Concomitant]
     Active Substance: AMPHETAMINE ASPARTATE\AMPHETAMINE SULFATE\DEXTROAMPHETAMINE SACCHARATE\DEXTROAMPHETAMINE SULFATE
  3. LEXAPRO [Concomitant]
     Active Substance: ESCITALOPRAM OXALATE

REACTIONS (18)
  - Botulism [None]
  - Dysphagia [None]
  - Eyelid ptosis [None]
  - Eyelid function disorder [None]
  - Diplopia [None]
  - Dysphagia [None]
  - Dysphoria [None]
  - Palatal disorder [None]
  - Drooling [None]
  - Grip strength decreased [None]
  - Muscular weakness [None]
  - Muscular weakness [None]
  - Weight decreased [None]
  - Product quality issue [None]
  - Victim of crime [None]
  - Aspiration [None]
  - Post procedural complication [None]
  - Mastication disorder [None]

NARRATIVE: CASE EVENT DATE: 20240211
